FAERS Safety Report 7440511-8 (Version None)
Quarter: 2011Q2

REPORT INFORMATION
  Report Type: 
  Country: None (occurrence: None)
  Receive Date: 20110427
  Receipt Date: 20110422
  Transmission Date: 20111010
  Serious: Yes (Death, Hospitalization)
  Sender: FDA-Public Use
  Company Number: A0755433A

PATIENT
  Age: 57 Year
  Sex: Male
  Weight: 134.1 kg

DRUGS (5)
  1. METHADONE [Concomitant]
  2. AVANDIA [Suspect]
     Route: 048
  3. GLUCOVANCE [Concomitant]
  4. HYDROCHLOROTHIAZIDE + LOSARTAN POTASSIUM [Concomitant]
  5. INSULIN [Concomitant]

REACTIONS (6)
  - CARDIAC FAILURE CONGESTIVE [None]
  - TRANSIENT ISCHAEMIC ATTACK [None]
  - PALPITATIONS [None]
  - CARDIAC ARREST [None]
  - DYSPNOEA [None]
  - OEDEMA PERIPHERAL [None]
